FAERS Safety Report 13128677 (Version 1)
Quarter: 2017Q1

REPORT INFORMATION
  Report Type: Other
  Country: SG (occurrence: SG)
  Receive Date: 20170118
  Receipt Date: 20170118
  Transmission Date: 20170428
  Serious: Yes (Hospitalization)
  Sender: FDA-Public Use
  Company Number: SG-LUPIN PHARMACEUTICALS INC.-2016-03982

PATIENT
  Age: 35 Year
  Sex: Male

DRUGS (3)
  1. TRAMADOL. [Suspect]
     Active Substance: TRAMADOL
     Dosage: TWO DOSES OF 50 MG
     Route: 048
  2. TRAMADOL. [Suspect]
     Active Substance: TRAMADOL
     Route: 048
  3. TRAMADOL. [Suspect]
     Active Substance: TRAMADOL
     Indication: PAIN
     Route: 042

REACTIONS (4)
  - Scrotal oedema [Recovered/Resolved]
  - Penile oedema [Recovered/Resolved]
  - Oedema peripheral [Recovered/Resolved]
  - Oedema [Recovered/Resolved]
